FAERS Safety Report 12866930 (Version 3)
Quarter: 2018Q2

REPORT INFORMATION
  Report Type: Spontaneous
  Country: US (occurrence: US)
  Receive Date: 20161020
  Receipt Date: 20180409
  Transmission Date: 20180711
  Serious: No
  Sender: FDA-Public Use
  Company Number: US-JAZZ-2016-US-014417

PATIENT
  Sex: Female

DRUGS (41)
  1. AMOXICILLIN. [Concomitant]
     Active Substance: AMOXICILLIN
  2. PRILOSEC [Concomitant]
     Active Substance: OMEPRAZOLE MAGNESIUM
  3. VYVANSE [Concomitant]
     Active Substance: LISDEXAMFETAMINE DIMESYLATE
  4. PATANASE [Concomitant]
     Active Substance: OLOPATADINE HYDROCHLORIDE
  5. IBUPROFEN. [Concomitant]
     Active Substance: IBUPROFEN
  6. TIZANIDINE. [Concomitant]
     Active Substance: TIZANIDINE
  7. ZONEGRAN [Concomitant]
     Active Substance: ZONISAMIDE
  8. DEXILANT [Concomitant]
     Active Substance: DEXLANSOPRAZOLE
  9. COENZYME Q10 [Concomitant]
     Active Substance: UBIDECARENONE
  10. CELEXA [Concomitant]
     Active Substance: CITALOPRAM HYDROBROMIDE
  11. AVELOX ABC [Concomitant]
  12. BEE POLLEN [Concomitant]
     Active Substance: BEE POLLEN
  13. BIOTENE PBF [Concomitant]
     Active Substance: SODIUM FLUORIDE
  14. XYREM [Suspect]
     Active Substance: SODIUM OXYBATE
     Indication: NARCOLEPSY
     Dosage: 2.25 G, BID
     Route: 048
     Dates: start: 2012, end: 201204
  15. XYREM [Suspect]
     Active Substance: SODIUM OXYBATE
     Dosage: 3.75 G, BID
     Route: 048
     Dates: start: 201209, end: 201210
  16. XYREM [Suspect]
     Active Substance: SODIUM OXYBATE
     Dosage: 4.5 G, BID
     Route: 048
     Dates: start: 201210, end: 2013
  17. ENJUVIA [Concomitant]
     Active Substance: ESTROGENS, CONJUGATED SYNTHETIC B
  18. NUVIGIL [Concomitant]
     Active Substance: ARMODAFINIL
  19. MAGNESIUM OXIDE. [Concomitant]
     Active Substance: MAGNESIUM OXIDE
  20. XYREM [Suspect]
     Active Substance: SODIUM OXYBATE
     Dosage: 3 G, BID
     Route: 048
     Dates: start: 201403, end: 2014
  21. XYREM [Suspect]
     Active Substance: SODIUM OXYBATE
     Dosage: 3 G, BID
     Route: 048
     Dates: start: 201607
  22. SINGULAIR [Concomitant]
     Active Substance: MONTELUKAST SODIUM
  23. CALCIUM +D [Concomitant]
     Active Substance: CALCIUM\VITAMIN D
  24. XYREM [Suspect]
     Active Substance: SODIUM OXYBATE
     Dosage: 3 G, BID
     Route: 048
     Dates: start: 201204, end: 2012
  25. MAGNESIUM [Concomitant]
     Active Substance: MAGNESIUM
  26. PREDNISONE. [Concomitant]
     Active Substance: PREDNISONE
  27. CLARITIN [Concomitant]
     Active Substance: LORATADINE
  28. QNASL [Concomitant]
     Active Substance: BECLOMETHASONE DIPROPIONATE
  29. ALDACTONE [Concomitant]
     Active Substance: SPIRONOLACTONE
  30. DULERA [Concomitant]
     Active Substance: FORMOTEROL FUMARATE DIHYDRATE\MOMETASONE FUROATE
  31. ATROVENT [Concomitant]
     Active Substance: IPRATROPIUM BROMIDE
  32. XYREM [Suspect]
     Active Substance: SODIUM OXYBATE
     Dosage: 2.25 G, BID
     Route: 048
     Dates: start: 201607, end: 201607
  33. AZITHROMYCIN ANHYDROUS. [Concomitant]
     Active Substance: AZITHROMYCIN ANHYDROUS
  34. AMERGE [Concomitant]
     Active Substance: NARATRIPTAN HYDROCHLORIDE
  35. ALBUTEROL SULFATE. [Concomitant]
     Active Substance: ALBUTEROL SULFATE
  36. VENTOLIN HFA [Concomitant]
     Active Substance: ALBUTEROL SULFATE
  37. YAZ [Concomitant]
     Active Substance: DROSPIRENONE\ETHINYL ESTRADIOL
  38. ZYRTEC-D [Concomitant]
     Active Substance: CETIRIZINE HYDROCHLORIDE\PSEUDOEPHEDRINE HYDROCHLORIDE
  39. MAXALT [Concomitant]
     Active Substance: RIZATRIPTAN BENZOATE
  40. EXCEDRIN MIGRAINE [Concomitant]
     Active Substance: ACETAMINOPHEN\ASPIRIN\CAFFEINE
  41. RELPAX [Concomitant]
     Active Substance: ELETRIPTAN HYDROBROMIDE

REACTIONS (1)
  - Asthma [Not Recovered/Not Resolved]
